FAERS Safety Report 20296301 (Version 1)
Quarter: 2022Q1

REPORT INFORMATION
  Report Type: Spontaneous
  Country: US (occurrence: None)
  Receive Date: 20220105
  Receipt Date: 20220105
  Transmission Date: 20220423
  Serious: Yes (Other)
  Sender: FDA-Public Use
  Company Number: US-Hikma Pharmaceuticals USA Inc.-US-H14001-21-05619

PATIENT
  Age: 62 Year
  Sex: Male

DRUGS (2)
  1. HEPARIN [Suspect]
     Active Substance: HEPARIN SODIUM
     Indication: Thrombosis
     Dosage: UNKNOWN
     Route: 041
  2. ALTEPLASE [Concomitant]
     Active Substance: ALTEPLASE
     Indication: Thrombosis
     Dosage: UNKNOWN
     Route: 065

REACTIONS (4)
  - Pulmonary embolism [Recovered/Resolved]
  - Tachypnoea [Unknown]
  - Tachycardia [Unknown]
  - Hypoxia [Unknown]
